FAERS Safety Report 10032890 (Version 2)
Quarter: 2014Q1

REPORT INFORMATION
  Report Type: Spontaneous
  Country: DE (occurrence: DE)
  Receive Date: 20140324
  Receipt Date: 20140324
  Transmission Date: 20141002
  Serious: Yes (Hospitalization)
  Sender: FDA-Public Use
  Company Number: DE-B.I. PHARMACEUTICALS,INC./RIDGEFIELD-2014-BI-10583DE

PATIENT
  Age: 73 Year
  Sex: Male
  Weight: 98 kg

DRUGS (6)
  1. PRADAXA [Suspect]
     Indication: ATRIAL FIBRILLATION
     Dosage: 300 MG
     Route: 065
     Dates: start: 201302, end: 201303
  2. PRADAXA [Suspect]
     Dosage: 300 MG
     Route: 065
     Dates: start: 201309, end: 201309
  3. CLEXANE [Concomitant]
     Route: 065
  4. BETA BLOCKING AGENTS [Concomitant]
     Route: 065
  5. AMIODARON [Concomitant]
     Route: 065
  6. AMPLODIPIN [Concomitant]
     Route: 065

REACTIONS (3)
  - Bile duct stenosis [Unknown]
  - Jaundice [Unknown]
  - Liver function test abnormal [Not Recovered/Not Resolved]
